FAERS Safety Report 20109814 (Version 2)
Quarter: 2021Q4

REPORT INFORMATION
  Report Type: Report from Study
  Country: US (occurrence: US)
  Receive Date: 20211124
  Receipt Date: 20211224
  Transmission Date: 20220303
  Serious: Yes (Death)
  Sender: FDA-Public Use
  Company Number: US-BAUSCH-BL-2021-038883

PATIENT
  Age: 70 Year
  Sex: Female
  Weight: 79 kg

DRUGS (1)
  1. XIFAXAN [Suspect]
     Active Substance: RIFAXIMIN
     Indication: Hepatic encephalopathy
     Route: 065
     Dates: start: 20201123

REACTIONS (1)
  - Death [Fatal]

NARRATIVE: CASE EVENT DATE: 20210922
